FAERS Safety Report 24781375 (Version 1)
Quarter: 2024Q4

REPORT INFORMATION
  Report Type: Spontaneous
  Country: GB (occurrence: GB)
  Receive Date: 20241227
  Receipt Date: 20241227
  Transmission Date: 20250114
  Serious: Yes (Other)
  Sender: STRIDES
  Company Number: GB-STRIDES ARCOLAB LIMITED-2024SP017005

PATIENT
  Age: 14 Year
  Sex: Female

DRUGS (3)
  1. SERTRALINE HYDROCHLORIDE [Suspect]
     Active Substance: SERTRALINE HYDROCHLORIDE
     Indication: Obsessive-compulsive disorder
     Dosage: UNK (INITIAL DOSAGE NOT STATED, GRADUALLY TITRATED IN STEPS OF 25 MG EVERY 2 WEEKS)
     Route: 065
  2. SERTRALINE HYDROCHLORIDE [Suspect]
     Active Substance: SERTRALINE HYDROCHLORIDE
     Dosage: 100 MILLIGRAM (DOSE INCREASED)
     Route: 065
  3. SERTRALINE HYDROCHLORIDE [Suspect]
     Active Substance: SERTRALINE HYDROCHLORIDE
     Dosage: UNK (DOSE WAS REDUCED AND ADVISED TO USE SERTRALINE WITH ALTERNATE DOSES)
     Route: 065

REACTIONS (4)
  - Micturition urgency [Recovered/Resolved]
  - Pollakiuria [Recovered/Resolved]
  - Quality of life decreased [Recovered/Resolved]
  - Urinary incontinence [Recovered/Resolved]
